FAERS Safety Report 10638643 (Version 1)
Quarter: 2014Q4

REPORT INFORMATION
  Report Type: Spontaneous
  Country: US (occurrence: US)
  Receive Date: 20141208
  Receipt Date: 20141208
  Transmission Date: 20150529
  Serious: Yes (Hospitalization)
  Sender: FDA-Public Use
  Company Number: US-SA-2014SA121316

PATIENT
  Age: 58 Year
  Sex: Female

DRUGS (3)
  1. LISINOPRIL. [Concomitant]
     Active Substance: LISINOPRIL
  2. BYSTOLIC [Concomitant]
     Active Substance: NEBIVOLOL HYDROCHLORIDE
  3. FERRLECIT [Suspect]
     Active Substance: SODIUM FERRIC GLUCONATE COMPLEX
     Indication: IRON DEFICIENCY
     Dosage: DOSE: 1 DOSE OF 125 MG OVER 1 HOUR
     Route: 065
     Dates: start: 20140827, end: 20140827

REACTIONS (8)
  - Joint swelling [Recovered/Resolved]
  - Dysgeusia [Recovered/Resolved]
  - Nausea [Recovered/Resolved]
  - Arthralgia [Recovered/Resolved]
  - Decreased appetite [Recovered/Resolved]
  - Diarrhoea [Recovered/Resolved]
  - Hypotension [Recovered/Resolved]
  - Vomiting [Recovered/Resolved]

NARRATIVE: CASE EVENT DATE: 20140827
